FAERS Safety Report 17689589 (Version 1)
Quarter: 2020Q2

REPORT INFORMATION
  Report Type: Spontaneous
  Country: LT (occurrence: LT)
  Receive Date: 20200421
  Receipt Date: 20200421
  Transmission Date: 20200714
  Serious: Yes (Hospitalization)
  Sender: FDA-Public Use
  Company Number: LT-TEVA-2020-LT-1225716

PATIENT
  Age: 35 Year
  Sex: Female
  Weight: 70 kg

DRUGS (1)
  1. METFORMIN [Suspect]
     Active Substance: METFORMIN HYDROCHLORIDE
     Route: 048
     Dates: start: 20200322, end: 20200325

REACTIONS (4)
  - Altered state of consciousness [Recovered/Resolved]
  - Hypokalaemia [Recovered/Resolved]
  - Intentional overdose [Recovered/Resolved]
  - Hypoglycaemia [Recovered/Resolved]

NARRATIVE: CASE EVENT DATE: 20200326
